FAERS Safety Report 19786199 (Version 1)
Quarter: 2021Q3

REPORT INFORMATION
  Report Type: Spontaneous
  Country: SI (occurrence: SI)
  Receive Date: 20210903
  Receipt Date: 20210903
  Transmission Date: 20211014
  Serious: Yes (Hospitalization)
  Sender: FDA-Public Use
  Company Number: SI-MYLANLABS-2021M1058367

PATIENT
  Age: 46 Year
  Sex: Female

DRUGS (19)
  1. DEXAMETHASONE ACETATE W/NEOMYCIN SULFATE/POLY [Suspect]
     Active Substance: DEXAMETHASONE\NEOMYCIN SULFATE\POLYMYXIN B SULFATE
     Indication: SKIN LESION
     Route: 047
     Dates: start: 202008
  2. CITANEST /00012401/ [Suspect]
     Active Substance: EPINEPHRINE\PRILOCAINE
     Indication: ANALGESIC THERAPY
     Route: 065
     Dates: start: 202008
  3. FLUCLOXACILLIN [Concomitant]
     Active Substance: FLUCLOXACILLIN
     Indication: PNEUMONIA MYCOPLASMAL
     Route: 042
     Dates: start: 202008
  4. SODIUM FUSIDATE [Suspect]
     Active Substance: FUSIDATE SODIUM
     Indication: SKIN LESION
     Route: 065
     Dates: start: 202008
  5. DEXAMETHASONE. [Concomitant]
     Active Substance: DEXAMETHASONE
     Indication: ABDOMINAL PAIN
     Dosage: ELASTOMERIC PUMP
     Route: 065
     Dates: start: 202008
  6. BETAMETHASONE. [Suspect]
     Active Substance: BETAMETHASONE
     Indication: SKIN LESION
     Dosage: LOTION
     Route: 061
  7. TRIAMCINOLONE [Suspect]
     Active Substance: TRIAMCINOLONE
     Indication: STEVENS-JOHNSON SYNDROME
     Route: 061
  8. CHLORAMPHENICOL [Suspect]
     Active Substance: CHLORAMPHENICOL
     Indication: RASH
     Route: 047
     Dates: start: 202008
  9. XYLOCAINE [Concomitant]
     Active Substance: LIDOCAINE HYDROCHLORIDE
     Indication: ABDOMINAL PAIN
     Dosage: ELASTOMERIC PUMP
     Route: 065
     Dates: start: 202008
  10. METHYLPREDNISOLONE. [Suspect]
     Active Substance: METHYLPREDNISOLONE
     Indication: STEVENS-JOHNSON SYNDROME
     Route: 042
     Dates: start: 202008
  11. BETAMETHASONE DIPROPIONATE W/GENTAMICIN [Suspect]
     Active Substance: BETAMETHASONE DIPROPIONATE\GENTAMICIN SULFATE
     Indication: SKIN LESION
     Dosage: LOTION
     Route: 061
  12. ONDANSETRAN [Concomitant]
     Active Substance: ONDANSETRON HYDROCHLORIDE
     Indication: ABDOMINAL PAIN
     Route: 065
     Dates: start: 202008
  13. PANTOPRAZOLE [Suspect]
     Active Substance: PANTOPRAZOLE
     Indication: STEVENS-JOHNSON SYNDROME
     Route: 042
     Dates: start: 202008
  14. SALINE                             /00075401/ [Suspect]
     Active Substance: SODIUM CHLORIDE
     Indication: PARENTERAL NUTRITION
     Route: 065
  15. ESKETAMINE [Concomitant]
     Active Substance: ESKETAMINE
     Indication: ABDOMINAL PAIN
     Dosage: ELASTOMERIC PUMP
     Route: 065
     Dates: start: 202008
  16. MOXIFLOXACIN. [Concomitant]
     Active Substance: MOXIFLOXACIN
     Indication: PNEUMONIA MYCOPLASMAL
     Route: 042
     Dates: start: 202008
  17. MORPHINE [Suspect]
     Active Substance: MORPHINE
     Indication: ANALGESIC THERAPY
     Route: 065
     Dates: start: 202008
  18. LIDOCAINE. [Suspect]
     Active Substance: LIDOCAINE
     Indication: ANALGESIC THERAPY
     Route: 065
     Dates: start: 202008
  19. CO?AMOXICLAV                       /00756801/ [Concomitant]
     Active Substance: AMOXICILLIN\CLAVULANIC ACID
     Indication: PHARYNGITIS
     Dosage: THREE TIMES DAILY
     Route: 042
     Dates: start: 202008

REACTIONS (2)
  - Drug ineffective [Unknown]
  - Off label use [Unknown]

NARRATIVE: CASE EVENT DATE: 202008
